FAERS Safety Report 10296248 (Version 2)
Quarter: 2014Q3

REPORT INFORMATION
  Report Type: Spontaneous
  Country: US (occurrence: US)
  Receive Date: 20140710
  Receipt Date: 20140710
  Transmission Date: 20150326
  Serious: No
  Sender: FDA-Public Use
  Company Number: US-PURDUE-USA-2014-0114449

PATIENT
  Age: 44 Year
  Sex: Male

DRUGS (2)
  1. BUTRANS [Suspect]
     Active Substance: BUPRENORPHINE
     Indication: PAIN IN EXTREMITY
  2. BUTRANS [Suspect]
     Active Substance: BUPRENORPHINE
     Indication: BACK PAIN
     Dosage: 10 MCG/HR, WEEKLY
     Route: 062
     Dates: start: 20140527

REACTIONS (13)
  - Inadequate analgesia [Not Recovered/Not Resolved]
  - Application site rash [Unknown]
  - Vomiting [Not Recovered/Not Resolved]
  - Tinnitus [Not Recovered/Not Resolved]
  - Formication [Not Recovered/Not Resolved]
  - Nausea [Not Recovered/Not Resolved]
  - Drug ineffective [Unknown]
  - Insomnia [Not Recovered/Not Resolved]
  - Dizziness [Not Recovered/Not Resolved]
  - Pruritus [Unknown]
  - Product contamination [None]
  - Application site erythema [Unknown]
  - Rash [Unknown]

NARRATIVE: CASE EVENT DATE: 20140527
